FAERS Safety Report 15563142 (Version 1)
Quarter: 2018Q4

REPORT INFORMATION
  Report Type: Spontaneous
  Country: US (occurrence: US)
  Receive Date: 20181029
  Receipt Date: 20181029
  Transmission Date: 20190205
  Serious: No
  Sender: FDA-Public Use
  Company Number: US-PFIZER INC-2018397274

PATIENT
  Sex: Female
  Weight: 64 kg

DRUGS (16)
  1. METHOTREXATE SODIUM. [Suspect]
     Active Substance: METHOTREXATE SODIUM
     Indication: RHEUMATOID ARTHRITIS
     Dosage: 10 MG, WEEKLY
     Route: 058
  2. FLEET ENEMA [Concomitant]
     Active Substance: SODIUM PHOSPHATE, DIBASIC\SODIUM PHOSPHATE, MONOBASIC
     Dosage: UNK UNK, AS NEEDED (19-7 GRAM/118 ML/DAILY PRN)
     Route: 054
  3. DILAUDID [Concomitant]
     Active Substance: HYDROMORPHONE HYDROCHLORIDE
     Dosage: UNK UNK, AS NEEDED (0.5-1.5 MG/Q15MIN PRN)
     Route: 042
  4. ATIVAN [Concomitant]
     Active Substance: LORAZEPAM
     Dosage: UNK UNK, AS NEEDED(0.5-1.5 MG/Q30MIN PRN)
     Route: 042
  5. MOUTH KOTE [Concomitant]
     Dosage: UNK UNK, AS NEEDED (Q2H PRN)
     Route: 048
  6. GLUCOSE [Concomitant]
     Active Substance: DEXTROSE
     Dosage: 16 G, AS NEEDED (PRN)
     Route: 048
  7. COMPAZINE [PROCHLORPERAZINE MALEATE] [Concomitant]
     Dosage: UNK UNK, AS NEEDED (5-10 MG/Q4H PRN)
     Route: 048
  8. COMPAZINE [PROCHLORPERAZINE MALEATE] [Concomitant]
     Dosage: UNK UNK, AS NEEDED (5-10 MG/Q4H PRN)
     Route: 042
  9. WHITE PETROLATUM [Concomitant]
     Active Substance: PETROLATUM
     Dosage: UNK UNK, AS NEEDED (PRN)
     Route: 061
  10. AQUAPHOR [MINERAL OIL LIGHT;PARAFFIN;PETROLATUM;WOOL ALCOHOLS] [Concomitant]
     Dosage: UNK UNK, AS NEEDED (PRN)
     Route: 061
  11. DEXTRAN 70/HYPROMELLOSE [Concomitant]
     Dosage: 2 GTT, AS NEEDED (0.1-0.3 %/2 DROP/BOTH EYES/Q1H PRN)
     Route: 047
  12. DULCOLAX NOS [Concomitant]
     Active Substance: BISACODYL OR DOCUSATE SODIUM
     Dosage: 10 MG, AS NEEDED (DAILY PRN)
     Route: 054
  13. DILAUDID [Concomitant]
     Active Substance: HYDROMORPHONE HYDROCHLORIDE
     Dosage: UNK (100 MG IN DEXTROSE 5 % 100 ML (1 MG/ML) IV INFUSION/0.2-6 MG/HR)
     Route: 042
  14. ZOFRAN [ONDANSETRON] [Concomitant]
     Dosage: 4 MG, AS NEEDED (Q12H PRN)
     Route: 042
  15. ROBINUL [Concomitant]
     Active Substance: GLYCOPYRROLATE
     Dosage: UNK UNK, AS NEEDED (Q6H PRN)
     Route: 048
  16. MORPHINE [Concomitant]
     Active Substance: MORPHINE
     Dosage: UNK UNK, AS NEEDED (2-6 MG/Q15MIN PRN)
     Route: 042

REACTIONS (10)
  - Diarrhoea [Unknown]
  - Nausea [Unknown]
  - Dyspnoea [Unknown]
  - Sinusitis [Unknown]
  - Chills [Unknown]
  - Myalgia [Unknown]
  - Vomiting [Unknown]
  - Malaise [Unknown]
  - Contraindicated product administered [Unknown]
  - Dizziness [Unknown]
